FAERS Safety Report 4635237-X (Version None)
Quarter: 2005Q2

REPORT INFORMATION
  Report Type: 
  Country: None (occurrence: None)
  Receive Date: 20050411
  Receipt Date: 20050330
  Transmission Date: 20051028
  Serious: Yes (Hospitalization)
  Sender: FDA-Public Use
  Company Number: 213489

PATIENT
  Age: 34 Year
  Sex: Male
  Weight: 80.7 kg

DRUGS (1)
  1. AVASTIN [Suspect]
     Indication: COLORECTAL CANCER METASTATIC
     Dosage: 5 MG/KG,  Q2W, INTRAVENOUS
     Route: 042
     Dates: start: 20041011, end: 20041201

REACTIONS (1)
  - ESCHERICHIA SEPSIS [None]
